FAERS Safety Report 4488007-X (Version None)
Quarter: 2004Q4

REPORT INFORMATION
  Report Type: 
  Country: None (occurrence: None)
  Receive Date: 20041028
  Receipt Date: 20041018
  Transmission Date: 20050328
  Serious: Yes (Hospitalization)
  Sender: FDA-Public Use
  Company Number: US-MERCK-0410USA02684

PATIENT
  Age: 66 Year
  Sex: Female

DRUGS (3)
  1. VIOXX [Suspect]
     Indication: ARTHRITIS
     Route: 048
     Dates: start: 19950101, end: 20040601
  2. HYDRODIURIL [Concomitant]
     Route: 048
  3. METOPROLOL [Concomitant]
     Route: 065

REACTIONS (2)
  - ARTHROPATHY [None]
  - CARDIAC ARREST [None]
